FAERS Safety Report 22222914 (Version 1)
Quarter: 2023Q2

REPORT INFORMATION
  Report Type: Spontaneous
  Country: US (occurrence: US)
  Receive Date: 20230418
  Receipt Date: 20230418
  Transmission Date: 20230722
  Serious: Yes (Hospitalization)
  Sender: FDA-Public Use
  Company Number: US-drreddys-LIT/USA/23/0163615

PATIENT
  Age: 51 Year
  Sex: Male

DRUGS (4)
  1. MONTELUKAST [Suspect]
     Active Substance: MONTELUKAST SODIUM
     Indication: Asthma
  2. TIOTROPIUM BROMIDE [Suspect]
     Active Substance: TIOTROPIUM BROMIDE
     Indication: Asthma
  3. PREDNISONE [Suspect]
     Active Substance: PREDNISONE
     Indication: Asthma
  4. ALBUTEROL [Suspect]
     Active Substance: ALBUTEROL
     Indication: Asthma

REACTIONS (5)
  - Asthma [Unknown]
  - Bronchospasm [Unknown]
  - Respiratory acidosis [Unknown]
  - Bronchopulmonary aspergillosis allergic [Unknown]
  - Drug ineffective [Unknown]
